FAERS Safety Report 21949037 (Version 4)
Quarter: 2024Q4

REPORT INFORMATION
  Report Type: Spontaneous
  Country: IT (occurrence: US)
  Receive Date: 20230203
  Receipt Date: 20241118
  Transmission Date: 20250114
  Serious: Yes (Other)
  Sender: AUROBINDO
  Company Number: IT-MYLANLABS-2023M1007309

PATIENT
  Age: 73 Year
  Sex: Male
  Weight: 175 kg

DRUGS (4)
  1. MELPHALAN [Suspect]
     Active Substance: MELPHALAN
     Indication: Plasma cell myeloma
     Dosage: 36 MILLIGRAM/SQ. METER, EVERY WEEK
     Route: 065
     Dates: start: 201902
  2. PREDNISONE [Suspect]
     Active Substance: PREDNISONE
     Indication: Plasma cell myeloma
     Dosage: 240 MILLIGRAM/SQ. METER, EVERY WEEK
     Route: 065
     Dates: start: 201902, end: 202003
  3. VELCADE [Suspect]
     Active Substance: BORTEZOMIB
     Indication: Plasma cell myeloma
     Dosage: 1.3 MILLIGRAM/KILOGRAM, EVERY WEEK
     Route: 065
     Dates: start: 201902, end: 202003
  4. VELCADE [Suspect]
     Active Substance: BORTEZOMIB
     Dosage: 2.6 MILLIGRAM/KILOGRAM, EVERY WEEK
     Route: 065
     Dates: start: 201902, end: 202003

REACTIONS (3)
  - Neuropathy peripheral [Unknown]
  - Weight decreased [Recovering/Resolving]
  - Decreased appetite [Unknown]
